FAERS Safety Report 4991451-5 (Version None)
Quarter: 2006Q2

REPORT INFORMATION
  Report Type: 
  Country: None (occurrence: None)
  Receive Date: 20060504
  Receipt Date: 20060328
  Transmission Date: 20061013
  Serious: Yes (Death, Life-Threatening)
  Sender: FDA-Public Use
  Company Number: 2006AP01489

PATIENT
  Age: 24135 Day
  Sex: Female

DRUGS (29)
  1. IRESSA [Suspect]
     Indication: OROPHARYNGEAL CANCER STAGE UNSPECIFIED
     Dosage: CONCOMITANT PHASE
     Route: 048
     Dates: start: 20060128, end: 20060323
  2. IRESSA [Suspect]
     Dosage: MAINTENANCE PHASE
     Route: 048
     Dates: start: 20060327, end: 20060328
  3. CISPLATIN [Suspect]
     Indication: OROPHARYNGEAL CANCER STAGE UNSPECIFIED
     Dates: start: 20060207, end: 20060207
  4. CISPLATIN [Suspect]
     Dosage: DOSE DECREASED DUE TO DECREASED CREATININE
     Dates: start: 20060301, end: 20060301
  5. RADIOTHERAPY [Suspect]
     Indication: OROPHARYNGEAL CANCER STAGE UNSPECIFIED
     Dosage: 2 GY ADMINSTERED DAILY.
     Dates: start: 20060206, end: 20060210
  6. RADIOTHERAPY [Suspect]
     Dosage: 2 GY ADMINSTERED DAILY.
     Dates: start: 20060213, end: 20060217
  7. RADIOTHERAPY [Suspect]
     Dosage: 2 GY ADMINSTERED DAILY.
     Dates: start: 20060220, end: 20060224
  8. RADIOTHERAPY [Suspect]
     Dosage: 2 GY ADMINSTERED DAILY.
     Dates: start: 20060227, end: 20060303
  9. RADIOTHERAPY [Suspect]
     Dosage: 2 GY ADMINSTERED DAILY.
     Dates: start: 20060306, end: 20060310
  10. RADIOTHERAPY [Suspect]
     Dosage: 2 GY ADMINSTERED DAILY.
     Dates: start: 20060313, end: 20060317
  11. RADIOTHERAPY [Suspect]
     Dosage: 2 GY ADMINSTERED DAILY.
     Dates: start: 20060320, end: 20060323
  12. LOPERAMIDE HYDROCHLORIDE [Concomitant]
     Indication: DIARRHOEA
     Route: 048
     Dates: start: 20060202, end: 20060205
  13. LOPERAMIDE HYDROCHLORIDE [Concomitant]
     Route: 048
     Dates: start: 20060227, end: 20060324
  14. MAGNESIUM EFFERVESCENS [Concomitant]
     Indication: BLOOD MAGNESIUM DECREASED
     Route: 048
     Dates: start: 20060206, end: 20060221
  15. NATRI CHLORATI [Concomitant]
     Indication: PROPHYLAXIS
     Route: 042
     Dates: start: 20060206, end: 20060207
  16. NATRI CHLORATI [Concomitant]
     Route: 042
     Dates: start: 20060218
  17. MULTIELECTROUTIC SOLUTION [Concomitant]
     Indication: DIARRHOEA
     Dates: start: 20060206, end: 20060207
  18. MULTIELECTROUTIC SOLUTION [Concomitant]
     Dates: start: 20060218
  19. GLUCOXUIM [Concomitant]
     Indication: PROPHYLAXIS
     Route: 042
     Dates: start: 20060206, end: 20060207
  20. KETOPROFEN [Concomitant]
     Indication: ANALGESIC THERAPY
     Route: 048
     Dates: start: 20060213, end: 20060226
  21. KETOPROFEN [Concomitant]
     Route: 048
     Dates: start: 20060227, end: 20060323
  22. RANITIDYNA [Concomitant]
     Indication: PROPHYLAXIS
     Route: 048
     Dates: start: 20060213, end: 20060226
  23. ACETYLOCYSTEINA [Concomitant]
     Indication: DRY MOUTH
     Route: 048
     Dates: start: 20060213, end: 20060218
  24. AMBROXOL [Concomitant]
     Indication: DRY MOUTH
     Route: 048
     Dates: start: 20060219, end: 20060222
  25. AMBROXOL [Concomitant]
     Route: 042
     Dates: start: 20060323
  26. NYSTATIN [Concomitant]
     Indication: PROPHYLAXIS
     Route: 048
     Dates: start: 20060213, end: 20060322
  27. NYSTATIN [Concomitant]
     Route: 048
     Dates: start: 20060322
  28. TRAMADOL HCL [Concomitant]
     Indication: PAIN
     Route: 048
     Dates: start: 20060317
  29. NUTRISON [Concomitant]
     Indication: CACHEXIA
     Route: 048
     Dates: start: 20060309, end: 20060324

REACTIONS (7)
  - ANAEMIA [None]
  - BRONCHOPNEUMONIA [None]
  - CARDIAC ARREST [None]
  - CIRCULATORY COLLAPSE [None]
  - ELECTROLYTE IMBALANCE [None]
  - HEPATIC FAILURE [None]
  - HEPATIC FUNCTION ABNORMAL [None]
